FAERS Safety Report 25896293 (Version 1)
Quarter: 2025Q4

REPORT INFORMATION
  Report Type: Spontaneous
  Country: GB (occurrence: GB)
  Receive Date: 20251008
  Receipt Date: 20251008
  Transmission Date: 20260117
  Serious: No
  Sender: US WORLDMEDS
  Company Number: GB-USWM-UWM202508-000134

PATIENT
  Sex: Female

DRUGS (1)
  1. EFLORNITHINE HYDROCHLORIDE [Suspect]
     Active Substance: EFLORNITHINE HYDROCHLORIDE
     Indication: Neuroblastoma
     Dosage: NOT PROVIDED

REACTIONS (2)
  - Alopecia [Unknown]
  - Adverse drug reaction [Unknown]
